FAERS Safety Report 16878800 (Version 2)
Quarter: 2019Q4

REPORT INFORMATION
  Report Type: Spontaneous
  Country: JP (occurrence: JP)
  Receive Date: 20191002
  Receipt Date: 20191015
  Transmission Date: 20200122
  Serious: Yes (Hospitalization)
  Sender: FDA-Public Use
  Company Number: JP-NOVOPROD-687062

PATIENT
  Age: 70 Year
  Sex: Male
  Weight: 59 kg

DRUGS (1)
  1. NOVORAPID [Suspect]
     Active Substance: INSULIN ASPART
     Indication: DIABETES MELLITUS
     Dosage: 10 IU, QD (5-0-5)
     Route: 058
     Dates: start: 2011

REACTIONS (1)
  - Heat illness [Unknown]

NARRATIVE: CASE EVENT DATE: 201608
